FAERS Safety Report 9390094 (Version 2)
Quarter: 2025Q1

REPORT INFORMATION
  Report Type: Spontaneous
  Country: US (occurrence: US)
  Receive Date: 20130708
  Receipt Date: 20250226
  Transmission Date: 20250409
  Serious: No
  Sender: AMGEN
  Company Number: US-AMGEN-USASP2012058028

PATIENT
  Age: 8 Month
  Sex: Male

DRUGS (2)
  1. ENBREL [Suspect]
     Active Substance: ETANERCEPT
     Indication: Maternal exposure during breast feeding
     Route: 063
  2. VITAMINS [Concomitant]
     Active Substance: VITAMINS
     Dosage: UNK UNK, QD
     Route: 064

REACTIONS (5)
  - Hypersensitivity [Unknown]
  - Exposure via breast milk [Unknown]
  - Pyrexia [Unknown]
  - Ear infection [Unknown]
  - Upper respiratory tract infection [Unknown]
